FAERS Safety Report 4362241-1 (Version None)
Quarter: 2004Q2

REPORT INFORMATION
  Report Type: 
  Country: None (occurrence: None)
  Receive Date: 20040517
  Receipt Date: 20040507
  Transmission Date: 20050107
  Serious: Yes (Hospitalization)
  Sender: FDA-Public Use
  Company Number: US-JNJFOC-20040501638

PATIENT
  Age: 47 Year
  Sex: Female

DRUGS (7)
  1. INFLIXIMAB, (INFLIXIMAB, RECOMBINANT) LYOPHILIZED POWDER [Suspect]
     Indication: RHEUMATOID ARTHRITIS
     Dosage: INTRAVENOUS
     Route: 042
     Dates: start: 20010206, end: 20021230
  2. ARAVA [Concomitant]
  3. TRAZODONE HCL [Concomitant]
  4. EFFEXOR [Concomitant]
  5. FLEXERIL [Concomitant]
  6. PREDNISONE [Concomitant]
  7. ENBREL [Concomitant]

REACTIONS (2)
  - BACTERIA STOOL IDENTIFIED [None]
  - GASTROENTERITIS [None]
